FAERS Safety Report 9174984 (Version 1)
Quarter: 2013Q1

REPORT INFORMATION
  Report Type: Report from Study
  Country: US (occurrence: US)
  Receive Date: 20130320
  Receipt Date: 20130320
  Transmission Date: 20140127
  Serious: Yes (Other)
  Sender: FDA-Public Use
  Company Number: US-009507513-1303USA008053

PATIENT
  Age: 49 Year
  Sex: Female
  Weight: 86.62 kg

DRUGS (6)
  1. VICTRELIS [Suspect]
     Indication: HEPATITIS C
     Dosage: 800 MG, TID
     Route: 048
     Dates: start: 20120831, end: 20121106
  2. COPEGUS [Suspect]
     Indication: HEPATITIS C
     Dosage: 600 MG, BID
     Route: 048
     Dates: start: 20120727, end: 20120824
  3. COPEGUS [Suspect]
     Dosage: 400 MG, UNK
     Route: 048
     Dates: start: 20120906, end: 20121106
  4. PEGASYS [Suspect]
     Indication: HEPATITIS C
     Dosage: 180 MICROGRAM, QW
     Route: 058
     Dates: start: 20120727, end: 20121106
  5. AMITRIPTYLINE HYDROCHLORIDE [Concomitant]
     Indication: ANXIETY
     Dosage: 50 MG, QPM
     Route: 048
     Dates: start: 20120823
  6. AMITRIPTYLINE HYDROCHLORIDE [Concomitant]
     Indication: DEPRESSION

REACTIONS (2)
  - Anaemia [Recovered/Resolved]
  - Platelet count decreased [Recovering/Resolving]
